FAERS Safety Report 6283621-3 (Version None)
Quarter: 2009Q3

REPORT INFORMATION
  Report Type: 
  Country: None (occurrence: None)
  Receive Date: 20090724
  Receipt Date: 20090420
  Transmission Date: 20100115
  Serious: No
  Sender: FDA-Public Use
  Company Number: US-ALEXION-A200900383

PATIENT
  Sex: Female

DRUGS (9)
  1. SOLIRIS [Suspect]
     Indication: PAROXYSMAL NOCTURNAL HAEMOGLOBINURIA
     Dosage: 600 MG, QW
     Route: 042
     Dates: start: 20070530, end: 20070620
  2. SOLIRIS [Suspect]
     Dosage: 900 MG, Q2W
     Route: 042
     Dates: start: 20070628
  3. TYLENOL (CAPLET) [Concomitant]
     Dosage: 500 MG, PRN
     Route: 048
  4. OXYCONTIN [Concomitant]
     Dosage: 40 MG, BID
     Route: 048
  5. TRAZODONE [Concomitant]
     Dosage: 50 MG, QD
     Route: 048
  6. DIPHENHYDRAMINE HCL [Concomitant]
     Indication: INSOMNIA
     Dosage: 25 MG, QHS, PRN
     Route: 048
  7. IBUPROFEN [Concomitant]
     Indication: PAIN
     Dosage: 800 MG, Q8H, PRN
     Route: 048
  8. LUNESTA [Concomitant]
     Indication: INSOMNIA
     Dosage: 1 MG, QHS, PRN
     Route: 048
  9. LORAZEPAM [Concomitant]
     Indication: ANXIETY
     Dosage: 0.5 MG, QD, PRN
     Route: 048

REACTIONS (3)
  - BUNDLE BRANCH BLOCK RIGHT [None]
  - ELECTROCARDIOGRAM QT PROLONGED [None]
  - LEFT VENTRICULAR HYPERTROPHY [None]
